FAERS Safety Report 4731697-4 (Version None)
Quarter: 2005Q3

REPORT INFORMATION
  Report Type: 
  Country: None (occurrence: None)
  Receive Date: 20050725
  Receipt Date: 20041110
  Transmission Date: 20060218
  Serious: Yes (Disabling)
  Sender: FDA-Public Use
  Company Number: WAES 0306USA00880

PATIENT
  Age: 58 Year
  Sex: Female
  Weight: 88.905 kg

DRUGS (6)
  1. VIOXX [Suspect]
     Dosage: 25 MG/DAILY/PO; SEE IMAGE
     Route: 048
     Dates: start: 20000801, end: 20011010
  2. VIOXX [Suspect]
     Dosage: 25 MG/DAILY/PO; SEE IMAGE
     Route: 048
     Dates: start: 20011010, end: 20030703
  3. EFFEXOR [Concomitant]
  4. PRAVACHOL [Concomitant]
  5. ZESTRIL [Concomitant]
  6. ATENOLOL [Concomitant]

REACTIONS (24)
  - ADVERSE EVENT [None]
  - ARTHRALGIA [None]
  - BALANCE DISORDER [None]
  - BLOOD PRESSURE INCREASED [None]
  - CONTUSION [None]
  - COSTOCHONDRITIS [None]
  - CYSTITIS [None]
  - CYSTOCELE [None]
  - DEAFNESS BILATERAL [None]
  - HEADACHE [None]
  - INTERMITTENT CLAUDICATION [None]
  - INTERVERTEBRAL DISC DEGENERATION [None]
  - OSTEOARTHRITIS [None]
  - OSTEOPOROSIS [None]
  - PAIN [None]
  - PALPITATIONS [None]
  - PYREXIA [None]
  - RASH PRURITIC [None]
  - ROAD TRAFFIC ACCIDENT [None]
  - SCOLIOSIS [None]
  - SPINAL COLUMN STENOSIS [None]
  - TINNITUS [None]
  - VASCULAR INSUFFICIENCY [None]
  - WEIGHT INCREASED [None]
